FAERS Safety Report 7010546-8 (Version None)
Quarter: 2010Q3

REPORT INFORMATION
  Report Type: 
  Country: None (occurrence: None)
  Receive Date: 20100923
  Receipt Date: 20100914
  Transmission Date: 20110219
  Serious: Yes (Hospitalization)
  Sender: FDA-Public Use
  Company Number: FR-SANOFI-AVENTIS-2010SA055367

PATIENT
  Age: 79 Year
  Sex: Female

DRUGS (9)
  1. PLAVIX [Suspect]
     Indication: CORONARY ARTERIAL STENT INSERTION
     Route: 048
     Dates: start: 20100510
  2. LASIX [Suspect]
     Indication: CORONARY ARTERIAL STENT INSERTION
     Route: 048
     Dates: start: 20100518, end: 20100607
  3. BISOPROLOL FUMARATE [Suspect]
     Indication: CORONARY ARTERIAL STENT INSERTION
     Route: 048
     Dates: start: 20100510, end: 20100607
  4. PERINDOPRIL [Suspect]
     Indication: CORONARY ARTERIAL STENT INSERTION
     Route: 048
     Dates: start: 20100510, end: 20100607
  5. ELISOR [Concomitant]
     Route: 048
     Dates: end: 20100531
  6. KARDEGIC [Concomitant]
     Indication: CORONARY ARTERIAL STENT INSERTION
     Route: 048
  7. ESOMEPRAZOLE MAGNESIUM [Concomitant]
     Route: 048
     Dates: start: 20080101, end: 20100607
  8. STRONTIUM RANELATE [Concomitant]
     Indication: OSTEOPOROSIS
     Route: 048
     Dates: start: 20100408, end: 20100520
  9. IOXAGLATE MEGLUMINE/IOXAGLATE SODIUM [Concomitant]
     Route: 042
     Dates: start: 20100509, end: 20100509

REACTIONS (3)
  - ACUTE GENERALISED EXANTHEMATOUS PUSTULOSIS [None]
  - PRURITUS [None]
  - RASH PUSTULAR [None]
